FAERS Safety Report 8433029-7 (Version None)
Quarter: 2012Q2

REPORT INFORMATION
  Report Type: 
  Country: None (occurrence: None)
  Receive Date: 20120323
  Receipt Date: 20110531
  Transmission Date: 20120825
  Serious: Yes (Hospitalization)
  Sender: FDA-Public Use
  Company Number: 163-21880-11060317

PATIENT
  Age: 89 Year
  Sex: Male

DRUGS (9)
  1. REVLIMID [Suspect]
     Indication: MULTIPLE MYELOMA
     Dosage: 1.4286 MG, 1 IN 1 WK, PO
     Route: 048
     Dates: start: 20070501
  2. ALLOPURINOL [Concomitant]
  3. KCL (POTASSIUM CHLORIDE) (LIQUID) [Concomitant]
  4. PLAVIX [Concomitant]
  5. FUROSEMIDE [Concomitant]
  6. PANTOPRAZOLE [Concomitant]
  7. PREDNISONE TAB [Concomitant]
  8. AMIODARONE HCL [Concomitant]
  9. LIPITOR [Concomitant]

REACTIONS (2)
  - PELVIC FRACTURE [None]
  - FALL [None]
